FAERS Safety Report 23452722 (Version 2)
Quarter: 2024Q1

REPORT INFORMATION
  Report Type: Spontaneous
  Country: IT (occurrence: IT)
  Receive Date: 20240129
  Receipt Date: 20240313
  Transmission Date: 20240409
  Serious: Yes (Other)
  Sender: FDA-Public Use
  Company Number: IT-TEVA-VS-3135026

PATIENT
  Age: 45 Year
  Sex: Female

DRUGS (2)
  1. PACLITAXEL [Suspect]
     Active Substance: PACLITAXEL
     Indication: Triple negative breast cancer
     Dosage: SCHEDULED ON DAYS 1, 8 AND 15 EVERY 28 DAYS (RECEIVED FOUR CYCLES)
     Route: 065
     Dates: start: 201807
  2. CARBOPLATIN [Suspect]
     Active Substance: CARBOPLATIN
     Indication: Triple negative breast cancer
     Dosage: DOSAGE: AUC 6 EVERY 21 DAYS; SCHEDULED FOR 17 CYCLES
     Route: 041

REACTIONS (2)
  - Drug ineffective [Unknown]
  - Infusion related hypersensitivity reaction [Unknown]
